FAERS Safety Report 25946729 (Version 1)
Quarter: 2025Q4

REPORT INFORMATION
  Report Type: Report from Study
  Country: CO (occurrence: CO)
  Receive Date: 20251022
  Receipt Date: 20251022
  Transmission Date: 20260117
  Serious: Yes (Hospitalization, Other)
  Sender: ASTELLAS
  Company Number: CO-ASTELLAS-2025-AER-043163

PATIENT
  Age: 54 Year
  Sex: Female
  Weight: 49 kg

DRUGS (2)
  1. TACROLIMUS [Suspect]
     Active Substance: TACROLIMUS
     Indication: Renal transplant
     Dosage: (2MG AM (IN THE MORNING) - 2MG PM (AT NIGHT))
     Route: 048
  2. MYCOPHENOLATE MOFETIL [Concomitant]
     Active Substance: MYCOPHENOLATE MOFETIL
     Indication: Product used for unknown indication
     Route: 065

REACTIONS (4)
  - Haemoglobin decreased [Not Recovered/Not Resolved]
  - Fall [Recovered/Resolved]
  - Ulna fracture [Recovered/Resolved]
  - Kidney transplant rejection [Recovered/Resolved]

NARRATIVE: CASE EVENT DATE: 20200101
